FAERS Safety Report 9715294 (Version 2)
Quarter: 2013Q4

REPORT INFORMATION
  Report Type: Spontaneous
  Country: GB (occurrence: GB)
  Receive Date: 20131127
  Receipt Date: 20131127
  Transmission Date: 20140711
  Serious: Yes (Other)
  Sender: FDA-Public Use
  Company Number: GB-ROCHE-1297968

PATIENT
  Sex: Female

DRUGS (1)
  1. HERCEPTIN [Suspect]
     Indication: PRODUCT USED FOR UNKNOWN INDICATION
     Route: 065

REACTIONS (8)
  - Herpes zoster [Unknown]
  - Psoriasis [Unknown]
  - Decreased appetite [Unknown]
  - Fatigue [Unknown]
  - Neuropathy peripheral [Unknown]
  - Nail injury [Unknown]
  - Insomnia [Unknown]
  - Dyspnoea exertional [Unknown]
